FAERS Safety Report 5073298-7 (Version None)
Quarter: 2006Q3

REPORT INFORMATION
  Report Type: 
  Country: None (occurrence: None)
  Receive Date: 20060706
  Receipt Date: 20060322
  Transmission Date: 20061208
  Serious: No
  Sender: FDA-Public Use
  Company Number: 200611761BWH

PATIENT
  Age: 80 Year
  Sex: Male
  Weight: 89.8122 kg

DRUGS (11)
  1. LEVITRA [Suspect]
     Indication: ERECTILE DYSFUNCTION
     Dosage: 20 MG, BIW , ORAL
     Route: 048
     Dates: start: 20060301
  2. ASPIRIN [Concomitant]
  3. PROBENECID [Concomitant]
  4. TOPROLOL XL [Concomitant]
  5. LISINOPRIL [Concomitant]
  6. DILTIAZEM HCL [Concomitant]
  7. DEPAKOTE [Concomitant]
  8. OMEPRAZOLE [Concomitant]
  9. ISOSORBIDE MONO ER [Concomitant]
  10. ZETIA [Concomitant]
  11. HYDROCHLOROTHIAZIDE [Concomitant]

REACTIONS (1)
  - BLOOD PRESSURE ABNORMAL [None]
